FAERS Safety Report 4706734-3 (Version None)
Quarter: 2005Q2

REPORT INFORMATION
  Report Type: 
  Country: None (occurrence: None)
  Receive Date: 20050629
  Receipt Date: 20050322
  Transmission Date: 20051028
  Serious: No
  Sender: FDA-Public Use
  Company Number: 05P-163-0286899-00

PATIENT
  Age: 61 Year
  Sex: Female
  Weight: 61.2356 kg

DRUGS (11)
  1. HUMIRA [Suspect]
     Indication: RHEUMATOID ARTHRITIS
     Dosage: 40 MG, 1 IN 2 WK, SUBCUTANEOUS
     Route: 058
     Dates: start: 20040801
  2. METHOTREXATE [Concomitant]
  3. ESOMEPRAZOLE [Concomitant]
  4. ZOCOR [Concomitant]
  5. PREDNISONE TAB [Concomitant]
  6. FOLIC ACID [Concomitant]
  7. MELOXICAM [Concomitant]
  8. HYDROXYCHLOROQUINE PHOSPHATE [Concomitant]
  9. HYDROCHLOROTHIAZIDE [Concomitant]
  10. ZOLPIDEM TARTRATE [Concomitant]
  11. ... [Concomitant]

REACTIONS (1)
  - INJECTION SITE IRRITATION [None]
